FAERS Safety Report 7814737-5 (Version None)
Quarter: 2011Q4

REPORT INFORMATION
  Report Type: 
  Country: None (occurrence: None)
  Receive Date: 20111014
  Receipt Date: 20111012
  Transmission Date: 20120403
  Serious: Yes (Other)
  Sender: FDA-Public Use
  Company Number: US-B.I. PHARMACEUTICALS,INC./RIDGEFIELD-2011-BP-24152BP

PATIENT
  Age: 70 Year
  Sex: Male

DRUGS (1)
  1. COMBIVENT [Suspect]
     Dates: start: 19920101

REACTIONS (1)
  - PROSTATE CANCER [None]
